FAERS Safety Report 6945946-5 (Version None)
Quarter: 2010Q3

REPORT INFORMATION
  Report Type: 
  Country: None (occurrence: None)
  Receive Date: 20100827
  Receipt Date: 20100818
  Transmission Date: 20110219
  Serious: Yes (Other)
  Sender: FDA-Public Use
  Company Number: US-JNJFOC-20100806970

PATIENT
  Age: 4 Decade
  Sex: Male

DRUGS (5)
  1. RISPERDAL CONSTA [Suspect]
     Indication: SCHIZOPHRENIA
     Route: 030
  2. INVEGA [Suspect]
     Indication: SCHIZOPHRENIA
     Route: 048
  3. DEPAKOTE [Concomitant]
     Route: 048
  4. COGENTIN [Concomitant]
     Route: 048
  5. TRAZODONE HCL [Concomitant]
     Route: 048

REACTIONS (4)
  - DIZZINESS [None]
  - FATIGUE [None]
  - HYPOTENSION [None]
  - SYNCOPE [None]
